FAERS Safety Report 8229432-0 (Version None)
Quarter: 2012Q1

REPORT INFORMATION
  Report Type: 
  Country: None (occurrence: None)
  Receive Date: 20120322
  Receipt Date: 20120319
  Transmission Date: 20120608
  Serious: Yes (Death, Hospitalization)
  Sender: FDA-Public Use
  Company Number: CA-ASTRAZENECA-2012SE18507

PATIENT
  Age: 88 Year
  Sex: Male

DRUGS (2)
  1. TIOTROPIUM BROMIDE [Concomitant]
     Indication: CHRONIC OBSTRUCTIVE PULMONARY DISEASE
     Route: 055
  2. SYMBICORT [Suspect]
     Indication: CHRONIC OBSTRUCTIVE PULMONARY DISEASE
     Dosage: 200 MCG TWO INHALATION TWICE A DAY (800 MCG DAILY DOSAGE)
     Route: 055
     Dates: end: 20100201

REACTIONS (2)
  - CANDIDIASIS [None]
  - LUNG NEOPLASM MALIGNANT [None]
